FAERS Safety Report 23823126 (Version 1)
Quarter: 2024Q2

REPORT INFORMATION
  Report Type: Spontaneous
  Country: AU (occurrence: AU)
  Receive Date: 20240507
  Receipt Date: 20240507
  Transmission Date: 20240716
  Serious: Yes (Hospitalization)
  Sender: FDA-Public Use
  Company Number: AU-HALEON-AUCH2024005109

PATIENT
  Age: 12 Week
  Sex: Female
  Weight: 2.2 kg

DRUGS (2)
  1. ACETAMINOPHEN [Suspect]
     Active Substance: ACETAMINOPHEN
     Indication: Pain management
     Dosage: UNK ;EXPDATE:202410
     Dates: start: 20240102, end: 20240102
  2. ACETAMINOPHEN [Suspect]
     Active Substance: ACETAMINOPHEN
     Dosage: UNK ;EXPDATE:202410
     Dates: start: 20240102, end: 20240102

REACTIONS (2)
  - Respiratory arrest [Unknown]
  - Product complaint [Unknown]

NARRATIVE: CASE EVENT DATE: 20240102
